FAERS Safety Report 5426969-4 (Version None)
Quarter: 2007Q3

REPORT INFORMATION
  Report Type: 
  Country: None (occurrence: None)
  Receive Date: 20070827
  Receipt Date: 20070822
  Transmission Date: 20080115
  Serious: Yes (Hospitalization)
  Sender: FDA-Public Use
  Company Number: JP-MERCK-0707USA03441

PATIENT
  Age: 69 Year
  Sex: Male

DRUGS (6)
  1. PEPCID RPD [Suspect]
     Route: 048
     Dates: start: 20070502
  2. MICARDIS [Suspect]
     Indication: HYPERTENSION
     Route: 048
     Dates: start: 20070502
  3. NORVASC [Suspect]
     Route: 048
     Dates: start: 20070502
  4. ASPIRIN [Suspect]
     Route: 048
     Dates: start: 20070502
  5. LASIX [Suspect]
     Route: 048
     Dates: start: 20070502
  6. WARFARIN [Suspect]
     Route: 048
     Dates: start: 20070502

REACTIONS (1)
  - HEPATIC FUNCTION ABNORMAL [None]
